FAERS Safety Report 6770891-8 (Version None)
Quarter: 2010Q2

REPORT INFORMATION
  Report Type: 
  Country: None (occurrence: None)
  Receive Date: 20100615
  Receipt Date: 20100607
  Transmission Date: 20101027
  Serious: Yes (Other)
  Sender: FDA-Public Use
  Company Number: CA-AMGEN-QUU417640

PATIENT
  Age: 26 Year
  Sex: Male

DRUGS (11)
  1. ENBREL [Suspect]
     Indication: ANKYLOSING SPONDYLITIS
     Dates: start: 20020701, end: 20021001
  2. ENBREL [Suspect]
     Dates: start: 20021001, end: 20031101
  3. ENBREL [Suspect]
     Route: 058
     Dates: start: 20031101, end: 20031201
  4. DICLOFENAC SODIUM [Concomitant]
  5. DICLOFENAC SODIUM [Concomitant]
     Dates: end: 20020101
  6. CODEINE SULFATE [Concomitant]
     Dosage: UNSPECIFIED
  7. CODEINE SULFATE [Concomitant]
     Dosage: UNSPECIFIED
     Dates: start: 20020501, end: 20020601
  8. CODEINE SULFATE [Concomitant]
     Dates: end: 20020101
  9. CODEINE SULFATE [Concomitant]
     Dosage: UNSPECIFIED
     Dates: start: 20040201
  10. ROFECOXIB [Concomitant]
     Dates: end: 20020101
  11. ACETAMINOPHEN [Concomitant]
     Dosage: UNSPECIFIED
     Dates: end: 20020101

REACTIONS (3)
  - ANKYLOSING SPONDYLITIS [None]
  - CONDITION AGGRAVATED [None]
  - CROHN'S DISEASE [None]
